FAERS Safety Report 7312893-9 (Version None)
Quarter: 2011Q1

REPORT INFORMATION
  Report Type: 
  Country: None (occurrence: None)
  Receive Date: 20110224
  Receipt Date: 20110210
  Transmission Date: 20110831
  Serious: Yes (Other)
  Sender: FDA-Public Use
  Company Number: US-ROCHE-736920

PATIENT
  Sex: Male
  Weight: 90.7 kg

DRUGS (5)
  1. CLARITIN [Concomitant]
     Dates: start: 19980101
  2. CIPRO [Concomitant]
     Dates: start: 19980101
  3. MONOPRIL [Concomitant]
     Dates: start: 19980101
  4. ACCUTANE [Suspect]
     Indication: ACNE
     Route: 065
     Dates: start: 19840101, end: 20030101
  5. BUTALBITAL [Concomitant]
     Dates: start: 19980101

REACTIONS (13)
  - CROHN'S DISEASE [None]
  - INSOMNIA [None]
  - INFLAMMATORY BOWEL DISEASE [None]
  - FRACTURE [None]
  - VISION BLURRED [None]
  - GASTROINTESTINAL INJURY [None]
  - DEPRESSION [None]
  - HYPERTENSION [None]
  - BACK PAIN [None]
  - PRURITUS [None]
  - DYSPEPSIA [None]
  - SLEEP APNOEA SYNDROME [None]
  - SUICIDAL IDEATION [None]
